FAERS Safety Report 8015020-8 (Version None)
Quarter: 2011Q4

REPORT INFORMATION
  Report Type: 
  Country: None (occurrence: None)
  Receive Date: 20111230
  Receipt Date: 20111223
  Transmission Date: 20120403
  Serious: No
  Sender: FDA-Public Use
  Company Number: US-BIOGENIDEC-2010BI007226

PATIENT
  Age: 59 Year
  Sex: Female

DRUGS (2)
  1. AVONEX [Concomitant]
     Indication: MULTIPLE SCLEROSIS
     Route: 030
  2. TYSABRI [Suspect]
     Indication: MULTIPLE SCLEROSIS
     Route: 042
     Dates: start: 20091118

REACTIONS (15)
  - EXCORIATION [None]
  - ROTATOR CUFF SYNDROME [None]
  - ORAL HERPES [None]
  - FALL [None]
  - SPONDYLOARTHROPATHY [None]
  - JOINT SWELLING [None]
  - ANKLE FRACTURE [None]
  - BALANCE DISORDER [None]
  - PAIN [None]
  - HERPES OPHTHALMIC [None]
  - HAEMATOMA [None]
  - DYSARTHRIA [None]
  - VISION BLURRED [None]
  - CONTUSION [None]
  - PAIN IN EXTREMITY [None]
